FAERS Safety Report 6415542-7 (Version None)
Quarter: 2009Q4

REPORT INFORMATION
  Report Type: 
  Country: None (occurrence: None)
  Receive Date: 20091027
  Receipt Date: 20091019
  Transmission Date: 20100525
  Serious: Yes (Hospitalization, Other)
  Sender: FDA-Public Use
  Company Number: JP-BRISTOL-MYERS SQUIBB COMPANY-14412118

PATIENT
  Age: 74 Year
  Sex: Male
  Weight: 62 kg

DRUGS (5)
  1. SPRYCEL [Suspect]
     Indication: ACUTE LYMPHOCYTIC LEUKAEMIA
     Dosage: INTERRUPTED ON 21NOV07 :100MG/D(DURATION:10DAYS) ROUTE:IV DRIP
     Route: 048
     Dates: start: 20070921
  2. CIPROXAN [Concomitant]
     Indication: PYREXIA
     Dosage: FORM = INJ
     Route: 041
     Dates: start: 20071110, end: 20071124
  3. AMIKACIN SULFATE [Concomitant]
     Indication: PYREXIA
     Route: 041
     Dates: start: 20071101, end: 20071115
  4. ZYVOX [Concomitant]
     Indication: PYREXIA
     Dosage: FORM = INJ
     Route: 041
     Dates: start: 20071115, end: 20071124
  5. AMBISOME [Concomitant]
     Indication: PYREXIA
     Dosage: FORM = INJ
     Route: 041
     Dates: start: 20071108, end: 20071124

REACTIONS (2)
  - GASTROINTESTINAL HAEMORRHAGE [None]
  - SHOCK HAEMORRHAGIC [None]
